FAERS Safety Report 21352062 (Version 3)
Quarter: 2022Q4

REPORT INFORMATION
  Report Type: Spontaneous
  Country: US (occurrence: US)
  Receive Date: 20220920
  Receipt Date: 20221220
  Transmission Date: 20230113
  Serious: Yes (Hospitalization)
  Sender: FDA-Public Use
  Company Number: US-ELI_LILLY_AND_COMPANY-US202209008031

PATIENT
  Sex: Female
  Weight: 97.52 kg

DRUGS (5)
  1. TADALAFIL [Suspect]
     Active Substance: TADALAFIL
     Indication: Pulmonary arterial hypertension
     Dosage: UNK UNK, UNKNOWN
     Route: 065
  2. REMODULIN [Suspect]
     Active Substance: TREPROSTINIL
     Indication: Pulmonary arterial hypertension
     Dosage: 11 NG/KG/MIN, DAILY (PRE-FILLED WITH 2.4 ML PER CASSETTE; PUMP RATE OF 24 MCL PER HOUR
     Route: 058
     Dates: start: 20220524
  3. REMODULIN [Suspect]
     Active Substance: TREPROSTINIL
     Dosage: 11 NG/KG/MIN, DAILY (PRE-FILLED WITH 2.4 ML PER CASSETTE; PUMP RATE OF 24 MCL PER HOUR
     Route: 058
  4. REMODULIN [Suspect]
     Active Substance: TREPROSTINIL
     Dosage: 11 NG/KG/MIN, DAILY (PRE-FILLED WITH 2.4 ML PER CASSETTE; PUMP RATE OF 24 MCL PER HOUR
     Route: 058
  5. AMBRISENTAN [Suspect]
     Active Substance: AMBRISENTAN
     Indication: Pulmonary arterial hypertension
     Dosage: 2 DOSAGE FORM, UNKNOWN
     Route: 065

REACTIONS (2)
  - Complication of pregnancy [Unknown]
  - Maternal exposure during pregnancy [Unknown]
